FAERS Safety Report 4837120-3 (Version None)
Quarter: 2005Q4

REPORT INFORMATION
  Report Type: 
  Country: None (occurrence: None)
  Receive Date: 20051122
  Receipt Date: 20051108
  Transmission Date: 20060501
  Serious: Yes (Hospitalization, Other)
  Sender: FDA-Public Use
  Company Number: 219140

PATIENT
  Age: 44 Year
  Sex: Female
  Weight: 80.7 kg

DRUGS (1)
  1. AVASTIN [Suspect]
     Indication: COLORECTAL CANCER METASTATIC
     Dosage: 5 MG/KG, Q2W, INTRAVENOUS
     Route: 042
     Dates: start: 20050511, end: 20050809

REACTIONS (6)
  - COAGULOPATHY [None]
  - HAEMORRHAGE [None]
  - IATROGENIC INJURY [None]
  - PLATELET COUNT DECREASED [None]
  - PROCEDURAL COMPLICATION [None]
  - VENOUS INJURY [None]
